FAERS Safety Report 17567685 (Version 2)
Quarter: 2020Q4

REPORT INFORMATION
  Report Type: Spontaneous
  Country: US (occurrence: US)
  Receive Date: 20200320
  Receipt Date: 20201127
  Transmission Date: 20210113
  Serious: Yes (Other)
  Sender: FDA-Public Use
  Company Number: US-JNJFOC-20191030218

PATIENT
  Age: 45 Year
  Sex: Male

DRUGS (6)
  1. LOSARTAN. [Concomitant]
     Active Substance: LOSARTAN
  2. ULTRAM [Suspect]
     Active Substance: TRAMADOL HYDROCHLORIDE
     Route: 065
  3. ULTRAM [Suspect]
     Active Substance: TRAMADOL HYDROCHLORIDE
     Route: 065
  4. HYDROCHLOROTHIAZIDE. [Concomitant]
     Active Substance: HYDROCHLOROTHIAZIDE
  5. WARFARIN [Concomitant]
     Active Substance: WARFARIN
  6. ULTRAM [Suspect]
     Active Substance: TRAMADOL HYDROCHLORIDE
     Indication: PRODUCT USED FOR UNKNOWN INDICATION
     Dosage: 1000 MG, 1/DAY
     Route: 065

REACTIONS (13)
  - Withdrawal syndrome [Recovered/Resolved]
  - Anxiety [Recovering/Resolving]
  - Depressed mood [Recovering/Resolving]
  - Intentional overdose [Recovered/Resolved]
  - Myoclonus [Recovering/Resolving]
  - Sensory disturbance [Unknown]
  - Drug use disorder [Recovered/Resolved]
  - Tinnitus [Recovering/Resolving]
  - Nausea [Recovering/Resolving]
  - Drug dependence [Recovered/Resolved]
  - Dizziness [Recovered/Resolved]
  - Hyperhidrosis [Recovering/Resolving]
  - Balance disorder [Recovering/Resolving]
